FAERS Safety Report 7338992-3 (Version None)
Quarter: 2011Q1

REPORT INFORMATION
  Report Type: 
  Country: None (occurrence: None)
  Receive Date: 20110308
  Receipt Date: 20110224
  Transmission Date: 20110831
  Serious: Yes (Hospitalization, Other)
  Sender: FDA-Public Use
  Company Number: NL-MEDIMMUNE-MEDI-0012776

PATIENT
  Sex: Male
  Weight: 2.84 kg

DRUGS (1)
  1. SYNAGIS [Suspect]
     Route: 030
     Dates: start: 20110223, end: 20110223

REACTIONS (6)
  - SHOCK [None]
  - PALLOR [None]
  - OXYGEN SATURATION DECREASED [None]
  - APNOEA [None]
  - EYE MOVEMENT DISORDER [None]
  - FLUID INTAKE REDUCED [None]
